FAERS Safety Report 11717622 (Version 1)
Quarter: 2015Q4

REPORT INFORMATION
  Report Type: Other
  Country: US (occurrence: US)
  Receive Date: 20151110
  Receipt Date: 20151110
  Transmission Date: 20160304
  Serious: No
  Sender: FDA-Public Use
  Company Number: US-JUBILANT GENERICS LIMITED-1043960

PATIENT
  Age: 77 Year
  Sex: Female
  Weight: 59.09 kg

DRUGS (5)
  1. HYDROCHLOROTHIAZIDE. [Concomitant]
     Active Substance: HYDROCHLOROTHIAZIDE
  2. PREVACID [Concomitant]
     Active Substance: LANSOPRAZOLE
  3. ECOTRIN REGULAR STRENGTH [Concomitant]
     Active Substance: ASPIRIN
  4. VALSARTAN. [Suspect]
     Active Substance: VALSARTAN
  5. DIOVAN [Concomitant]
     Active Substance: VALSARTAN

REACTIONS (1)
  - Abdominal pain [Unknown]

NARRATIVE: CASE EVENT DATE: 20150713
